FAERS Safety Report 7596380-9 (Version None)
Quarter: 2011Q3

REPORT INFORMATION
  Report Type: 
  Country: None (occurrence: None)
  Receive Date: 20110707
  Receipt Date: 20110629
  Transmission Date: 20111222
  Serious: Yes (Hospitalization, Other)
  Sender: FDA-Public Use
  Company Number: CA-ABBOTT-11P-028-0709358-00

PATIENT
  Sex: Male
  Weight: 92 kg

DRUGS (2)
  1. METOPROLOL TARTRATE [Concomitant]
     Indication: PRODUCT USED FOR UNKNOWN INDICATION
     Dosage: 100MG DAILY
  2. MAVIK [Suspect]
     Indication: ESSENTIAL HYPERTENSION
     Dosage: 2 MG DAILY
     Route: 048
     Dates: start: 20100201

REACTIONS (1)
  - AORTIC VALVE REPLACEMENT [None]
